FAERS Safety Report 5070990-5 (Version None)
Quarter: 2006Q3

REPORT INFORMATION
  Report Type: 
  Country: None (occurrence: None)
  Receive Date: 20060804
  Receipt Date: 20051116
  Transmission Date: 20061208
  Serious: Yes (Other)
  Sender: FDA-Public Use
  Company Number: US-GLAXOSMITHKLINE-A0582497A

PATIENT
  Age: 58 Year
  Sex: Female

DRUGS (1)
  1. NICORETTE (MINT) [Suspect]
     Dosage: 4MG SEE DOSAGE TEXT

REACTIONS (4)
  - DENTAL PULP DISORDER [None]
  - DRUG ABUSER [None]
  - GINGIVAL RECESSION [None]
  - NICOTINE DEPENDENCE [None]
